FAERS Safety Report 22370304 (Version 5)
Quarter: 2025Q1

REPORT INFORMATION
  Report Type: Report from Study
  Country: JP (occurrence: JP)
  Receive Date: 20230526
  Receipt Date: 20250115
  Transmission Date: 20250408
  Serious: Yes (Death, Other)
  Sender: TAKEDA
  Company Number: JP-TAKEDA-2023TJP006366

PATIENT
  Age: 71 Year
  Sex: Female
  Weight: 38.1 kg

DRUGS (39)
  1. TEDUGLUTIDE [Suspect]
     Active Substance: TEDUGLUTIDE
     Indication: Short-bowel syndrome
     Dates: start: 20220512, end: 20240709
  2. TEDUGLUTIDE [Suspect]
     Active Substance: TEDUGLUTIDE
  3. TEDUGLUTIDE [Suspect]
     Active Substance: TEDUGLUTIDE
  4. TEDUGLUTIDE [Suspect]
     Active Substance: TEDUGLUTIDE
  5. FESIN [Concomitant]
     Indication: Iron deficiency anaemia
  6. WARFARIN [Concomitant]
     Active Substance: WARFARIN
  7. CALCIUM CHLORIDE [Concomitant]
     Active Substance: CALCIUM CHLORIDE
     Indication: Short-bowel syndrome
     Dosage: 20 MILLILITER, 1/WEEK
  8. CUPRIC SULFATE\FERRIC CHLORIDE\MANGANESE CHLORIDE\POTASSIUM IODIDE\ZIN [Concomitant]
     Active Substance: CUPRIC SULFATE\FERRIC CHLORIDE\MANGANESE CHLORIDE\POTASSIUM IODIDE\ZINC SULFATE
     Indication: Short-bowel syndrome
     Dosage: 2 MILLILITER, 1/WEEK
  9. FESIN [Concomitant]
     Indication: Short-bowel syndrome
     Dosage: 40 MILLIGRAM, 1/WEEK
  10. OPALMON [Concomitant]
     Active Substance: LIMAPROST
     Dosage: 10 MICROGRAM, TID
  11. OPALMON [Concomitant]
     Active Substance: LIMAPROST
     Dosage: 10 MICROGRAM, BID
  12. NITROFURANTOIN [Concomitant]
     Active Substance: NITROFURANTOIN
     Indication: Short-bowel syndrome
     Dosage: 75 MILLIGRAM, BID
  13. METHYLCOBALAMIN [Concomitant]
     Active Substance: METHYLCOBALAMIN
     Indication: Short-bowel syndrome
     Dosage: 500 MICROGRAM, TID
  14. ELDECALCITOL [Concomitant]
     Active Substance: ELDECALCITOL
     Indication: Short-bowel syndrome
     Dosage: 0.75 MICROGRAM, QD
  15. CYANOCOBALAMIN\PYRIDOXINE HYDROCHLORIDE\THIAMINE [Concomitant]
     Active Substance: CYANOCOBALAMIN\PYRIDOXINE HYDROCHLORIDE\THIAMINE
     Indication: Short-bowel syndrome
     Dosage: 1 DOSAGE FORM, 1/WEEK
  16. DARBEPOETIN ALFA BIOSIMILAR 1 [Concomitant]
     Dosage: 120 MICROGRAM, MONTHLY
  17. SOYBEAN OIL [Concomitant]
     Active Substance: SOYBEAN OIL
     Indication: Short-bowel syndrome
     Dosage: 100 MILLILITER, 1/WEEK
  18. CALCIUM CHLORIDE DIHYDRATE;MALTOSE MONOHYDRATE;POTASSIUM CHLORIDE;SODI [Concomitant]
     Indication: Short-bowel syndrome
     Dosage: 500 MILLILITER, 1/WEEK
  19. AMINO ACIDS\DEXTROSE\ELECTROLYTES NOS\VITAMINS [Concomitant]
     Active Substance: AMINO ACIDS\DEXTROSE\ELECTROLYTES NOS\VITAMINS
     Indication: Short-bowel syndrome
     Dosage: 500 MILLILITER, 1/WEEK
  20. URSO [Concomitant]
     Active Substance: URSODIOL
     Dosage: 100 MILLIGRAM, TID
  21. URSO [Concomitant]
     Active Substance: URSODIOL
  22. LOXOPROFEN SODIUM [Concomitant]
     Active Substance: LOXOPROFEN SODIUM
     Dosage: 60 MILLIGRAM, TID
  23. FEBUXOSTAT [Concomitant]
     Active Substance: FEBUXOSTAT
     Dosage: 40 MILLIGRAM, QD
  24. FEBUXOSTAT [Concomitant]
     Active Substance: FEBUXOSTAT
     Dosage: 60 MILLIGRAM, QD
  25. DEXTROSE [Concomitant]
     Active Substance: DEXTROSE MONOHYDRATE
     Indication: Short-bowel syndrome
  26. LIMAPROST [Concomitant]
     Active Substance: LIMAPROST
  27. LOXOPROFEN SODIUM [Concomitant]
     Active Substance: LOXOPROFEN SODIUM
  28. FEBUXOSTAT [Concomitant]
     Active Substance: FEBUXOSTAT
  29. URSODIOL [Concomitant]
     Active Substance: URSODIOL
     Dosage: 100 MILLIGRAM, TID
  30. LEVOTHYROXINE SODIUM [Concomitant]
     Active Substance: LEVOTHYROXINE SODIUM
     Dosage: 300 MICROGRAM, QD
  31. LEVOTHYROXINE SODIUM [Concomitant]
     Active Substance: LEVOTHYROXINE SODIUM
  32. CALCIUM CHLORIDE ANHYDROUS\POTASSIUM CHLORIDE\SODIUM CHLORIDE\SODIUM L [Concomitant]
     Active Substance: CALCIUM CHLORIDE ANHYDROUS\POTASSIUM CHLORIDE\SODIUM CHLORIDE\SODIUM LACTATE
  33. MIYA-BM [Concomitant]
     Active Substance: CLOSTRIDIUM BUTYRICUM SPORES STRAIN M-55
     Dosage: 1 DOSAGE FORM, TID
  34. MIYA-BM [Concomitant]
     Active Substance: CLOSTRIDIUM BUTYRICUM SPORES STRAIN M-55
  35. DAPRODUSTAT [Concomitant]
     Active Substance: DAPRODUSTAT
     Dosage: 2 MILLIGRAM, QD
  36. CALCIUM CHLORIDE ANHYDROUS\POTASSIUM CHLORIDE\SODIUM CHLORIDE\SODIUM L [Concomitant]
     Active Substance: CALCIUM CHLORIDE ANHYDROUS\POTASSIUM CHLORIDE\SODIUM CHLORIDE\SODIUM LACTATE
     Indication: Short-bowel syndrome
     Dosage: 500 MILLILITER, 5/WEEK
  37. ELDECALCITOL [Concomitant]
     Active Substance: ELDECALCITOL
     Dosage: 0.75 MICROGRAM, QD
  38. NITROFURANTOIN [Concomitant]
     Active Substance: NITROFURANTOIN
  39. METHYLCOBALAMIN [Concomitant]
     Active Substance: METHYLCOBALAMIN

REACTIONS (4)
  - Cardiac failure [Fatal]
  - Renal impairment [Fatal]
  - Nausea [Recovered/Resolved]
  - Vomiting [Recovered/Resolved]

NARRATIVE: CASE EVENT DATE: 20220517
